FAERS Safety Report 5058099-8 (Version None)
Quarter: 2006Q3

REPORT INFORMATION
  Report Type: 
  Country: None (occurrence: None)
  Receive Date: 20060721
  Receipt Date: 20060627
  Transmission Date: 20061208
  Serious: Yes (Life-Threatening, Hospitalization, Other)
  Sender: FDA-Public Use
  Company Number: US-GLAXOSMITHKLINE-A0610489A

PATIENT
  Age: 88 Year
  Sex: Female
  Weight: 56.8 kg

DRUGS (3)
  1. REQUIP [Suspect]
     Indication: RESTLESS LEGS SYNDROME
     Dosage: .5MG AT NIGHT
     Route: 048
     Dates: start: 20051001, end: 20060401
  2. DURAGESIC-100 [Suspect]
     Indication: DRUG USE FOR UNKNOWN INDICATION
     Dosage: 50MCG UNKNOWN
     Route: 062
     Dates: start: 20041001
  3. SLEEPING PILLS [Suspect]
     Indication: DRUG USE FOR UNKNOWN INDICATION
     Dosage: 8TAB SINGLE DOSE
     Route: 065

REACTIONS (5)
  - DECREASED APPETITE [None]
  - DEPRESSION [None]
  - INTENTIONAL OVERDOSE [None]
  - SLEEP DISORDER [None]
  - SUICIDE ATTEMPT [None]
